FAERS Safety Report 4543596-1 (Version None)
Quarter: 2005Q1

REPORT INFORMATION
  Report Type: 
  Country: None (occurrence: None)
  Receive Date: 20050103
  Receipt Date: 20041116
  Transmission Date: 20050727
  Serious: Yes (Hospitalization)
  Sender: FDA-Public Use
  Company Number: JP-GLAXOSMITHKLINE-B0357464A

PATIENT
  Age: 71 Year
  Sex: Female
  Weight: 36 kg

DRUGS (4)
  1. PAXIL [Suspect]
     Indication: DEPRESSION
     Route: 048
     Dates: start: 20040903, end: 20041005
  2. DEPAS [Suspect]
     Indication: ANXIETY DISORDER
     Dosage: .5MG SEE DOSAGE TEXT
     Route: 048
     Dates: start: 20040903, end: 20041005
  3. CEFZON [Concomitant]
     Indication: UPPER RESPIRATORY TRACT INFLAMMATION
     Dosage: 100MG THREE TIMES PER DAY
     Route: 048
     Dates: start: 20041004, end: 20041005
  4. LORCAM [Concomitant]
     Indication: UPPER RESPIRATORY TRACT INFLAMMATION
     Dosage: 4MG THREE TIMES PER DAY
     Route: 048
     Dates: start: 20041004, end: 20041005

REACTIONS (18)
  - ALANINE AMINOTRANSFERASE INCREASED [None]
  - ASPARTATE AMINOTRANSFERASE INCREASED [None]
  - BLOOD ALKALINE PHOSPHATASE INCREASED [None]
  - C-REACTIVE PROTEIN INCREASED [None]
  - CATARACT [None]
  - DEHYDRATION [None]
  - DEPRESSED LEVEL OF CONSCIOUSNESS [None]
  - EPILEPSY [None]
  - FEELING ABNORMAL [None]
  - GAMMA-GLUTAMYLTRANSFERASE INCREASED [None]
  - GLAUCOMA [None]
  - LIVER DISORDER [None]
  - LOSS OF CONSCIOUSNESS [None]
  - LUMBAR VERTEBRAL FRACTURE [None]
  - PYREXIA [None]
  - RESTLESSNESS [None]
  - SPINAL COMPRESSION FRACTURE [None]
  - VISUAL DISTURBANCE [None]
